FAERS Safety Report 23228456 (Version 1)
Quarter: 2023Q4

REPORT INFORMATION
  Report Type: Report from Study
  Country: US (occurrence: US)
  Receive Date: 20231125
  Receipt Date: 20231125
  Transmission Date: 20240109
  Serious: Yes (Congenital Anomaly, Other)
  Sender: FDA-Public Use
  Company Number: US-drreddys-CLI/USA/23/0183523

PATIENT
  Age: 4 Year
  Sex: Male
  Weight: 2.4 kg

DRUGS (9)
  1. LURASIDONE [Suspect]
     Active Substance: LURASIDONE
     Indication: Bipolar disorder
     Dosage: LURASIDONE (BIPOLAR DISORDER) LMP - DELIVERY
     Route: 064
  2. RANITIDINE [Suspect]
     Active Substance: RANITIDINE
     Indication: Dyspepsia
  3. GABAPENTIN [Suspect]
     Active Substance: GABAPENTIN
     Indication: Intervertebral disc degeneration
  4. CYCLOBENZAPRINE [Suspect]
     Active Substance: CYCLOBENZAPRINE
     Indication: Intervertebral disc degeneration
  5. ZONISAMIDE [Suspect]
     Active Substance: ZONISAMIDE
     Indication: Migraine
  6. AMOXICILLIN [Suspect]
     Active Substance: AMOXICILLIN
     Indication: Sinusitis
  7. METHYLPREDNISOLONE [Suspect]
     Active Substance: METHYLPREDNISOLONE
     Indication: Sinusitis
  8. LITHIUM [Suspect]
     Active Substance: LITHIUM
     Indication: Bipolar disorder
  9. TRAZODONE [Suspect]
     Active Substance: TRAZODONE HYDROCHLORIDE
     Indication: Sleep disorder

REACTIONS (9)
  - Scrotal disorder [Unknown]
  - Inguinal hernia [Unknown]
  - Penis disorder [Unknown]
  - Phimosis [Unknown]
  - Foetal cardiac disorder [Unknown]
  - Poor feeding infant [Unknown]
  - Hypotonia [Unknown]
  - Torticollis [Unknown]
  - Foetal exposure during pregnancy [Unknown]

NARRATIVE: CASE EVENT DATE: 20190317
